FAERS Safety Report 8164531-3 (Version None)
Quarter: 2012Q1

REPORT INFORMATION
  Report Type: 
  Country: None (occurrence: None)
  Receive Date: 20120224
  Receipt Date: 20120215
  Transmission Date: 20120608
  Serious: Yes (Other)
  Sender: FDA-Public Use
  Company Number: US-ASTRAZENECA-2008UW13248

PATIENT
  Age: 57 Year
  Sex: Female

DRUGS (7)
  1. CRESTOR [Suspect]
     Route: 048
  2. NEXIUM [Concomitant]
     Dates: end: 20080101
  3. ATENOLOL [Concomitant]
  4. HYDROCODONE BITARTRATE [Concomitant]
     Indication: PAIN
     Dosage: AS REQUIRED
  5. LISINOPRIL AND HYDROCHLOROTHIAZIDE [Concomitant]
  6. ZETIA [Concomitant]
     Dates: start: 20080601
  7. PRILOSEC [Concomitant]
     Indication: GASTROOESOPHAGEAL REFLUX DISEASE
     Dates: start: 20080101

REACTIONS (8)
  - OSTEOPOROSIS [None]
  - HYPERCALCAEMIA [None]
  - NAUSEA [None]
  - NEPHROLITHIASIS [None]
  - BLADDER PROLAPSE [None]
  - ANKLE FRACTURE [None]
  - WRIST FRACTURE [None]
  - FALL [None]
